FAERS Safety Report 17168891 (Version 1)
Quarter: 2019Q4

REPORT INFORMATION
  Report Type: Spontaneous
  Country: IN (occurrence: IN)
  Receive Date: 20191218
  Receipt Date: 20191218
  Transmission Date: 20200122
  Serious: Yes (Other)
  Sender: FDA-Public Use
  Company Number: IN-DENTSPLY-2019SCDP000676

PATIENT
  Age: 34 Year
  Sex: Female

DRUGS (1)
  1. LIGNOCAINE WITH ADRENALINE [Suspect]
     Active Substance: EPINEPHRINE BITARTRATE\LIDOCAINE HYDROCHLORIDE
     Indication: LOCAL ANAESTHESIA
     Dosage: UNK

REACTIONS (3)
  - Diplopia [Recovered/Resolved]
  - Ophthalmoplegia [Recovered/Resolved]
  - Anaesthetic complication [Recovered/Resolved]
